FAERS Safety Report 7871764-X (Version None)
Quarter: 2011Q4

REPORT INFORMATION
  Report Type: 
  Country: None (occurrence: None)
  Receive Date: 20111014
  Receipt Date: 20101001
  Transmission Date: 20120403
  Serious: Yes (Death)
  Sender: FDA-Public Use
  Company Number: 1000015826

PATIENT
  Age: 60 Year
  Sex: Male

DRUGS (2)
  1. KLONOPIN (CLONAZEPAM) (0.5 MILLIGRAM, TABLETS) (CLONAZEPAM) [Concomitant]
  2. LEXAPRO [Suspect]
     Indication: ANXIETY
     Dosage: 10 MG (10 MG, 1 IN 1 D),ORAL
     Route: 048
     Dates: start: 20100810, end: 20100812

REACTIONS (1)
  - COMPLETED SUICIDE [None]
